FAERS Safety Report 6425723-4 (Version None)
Quarter: 2009Q4

REPORT INFORMATION
  Report Type: 
  Country: None (occurrence: None)
  Receive Date: 20091103
  Receipt Date: 20091026
  Transmission Date: 20100525
  Serious: Yes (Hospitalization)
  Sender: FDA-Public Use
  Company Number: PHHO2009CA13025

PATIENT
  Sex: Male

DRUGS (3)
  1. NEORAL [Suspect]
     Indication: LIVER TRANSPLANT
     Dosage: 350 MG, BID
     Route: 048
     Dates: start: 20090926
  2. NEORAL [Suspect]
     Dosage: 200 MG, BID
     Route: 048
     Dates: start: 20091014
  3. NEORAL [Suspect]
     Dosage: 50 MG, BID
     Route: 048
     Dates: start: 20091023

REACTIONS (6)
  - ASCITES [None]
  - BLOOD CREATININE INCREASED [None]
  - NAUSEA [None]
  - PARACENTESIS [None]
  - THERAPEUTIC AGENT TOXICITY [None]
  - VOMITING [None]
